FAERS Safety Report 4989372-7 (Version None)
Quarter: 2006Q2

REPORT INFORMATION
  Report Type: 
  Country: None (occurrence: None)
  Receive Date: 20060426
  Receipt Date: 20060407
  Transmission Date: 20061013
  Serious: Yes (Hospitalization)
  Sender: FDA-Public Use
  Company Number: US200604001536

PATIENT
  Age: 82 Year
  Sex: Female

DRUGS (2)
  1. FORTEO [Suspect]
     Indication: BONE DISORDER
     Dates: start: 20040101
  2. FORTEO [Concomitant]

REACTIONS (5)
  - FALL [None]
  - ILL-DEFINED DISORDER [None]
  - OESOPHAGEAL DISORDER [None]
  - PHARMACEUTICAL PRODUCT COMPLAINT [None]
  - URINARY TRACT INFECTION [None]
